FAERS Safety Report 17064665 (Version 2)
Quarter: 2020Q1

REPORT INFORMATION
  Report Type: Spontaneous
  Country: US (occurrence: US)
  Receive Date: 20191122
  Receipt Date: 20200116
  Transmission Date: 20200409
  Serious: Yes (Other)
  Sender: FDA-Public Use
  Company Number: US-PFIZER INC-2019502788

PATIENT
  Age: 48 Year
  Sex: Female
  Weight: 118.82 kg

DRUGS (1)
  1. EFFEXOR XR [Suspect]
     Active Substance: VENLAFAXINE HYDROCHLORIDE
     Indication: DEPRESSION
     Dosage: 150 MG, ONCE DAILY
     Dates: start: 2011, end: 201909

REACTIONS (4)
  - Weight increased [Unknown]
  - Vomiting [Unknown]
  - Malaise [Unknown]
  - Back pain [Unknown]
